FAERS Safety Report 22632985 (Version 1)
Quarter: 2023Q2

REPORT INFORMATION
  Report Type: Spontaneous
  Country: BR (occurrence: BR)
  Receive Date: 20230623
  Receipt Date: 20230623
  Transmission Date: 20230721
  Serious: Yes (Death, Other)
  Sender: FDA-Public Use
  Company Number: BR-AMGEN-BRASP2023106148

PATIENT
  Sex: Male

DRUGS (5)
  1. ADALIMUMAB [Suspect]
     Active Substance: ADALIMUMAB
     Indication: Adenosine deaminase 2 deficiency
     Dosage: UNK
     Route: 065
  2. RITUXIMAB [Suspect]
     Active Substance: RITUXIMAB
     Indication: Adenosine deaminase 2 deficiency
     Dosage: UNK
     Route: 065
  3. AZATHIOPRINE [Concomitant]
     Active Substance: AZATHIOPRINE
     Indication: Adenosine deaminase 2 deficiency
     Dosage: UNK
  4. MYCOPHENOLATE MOFETIL [Concomitant]
     Active Substance: MYCOPHENOLATE MOFETIL
     Indication: Adenosine deaminase 2 deficiency
     Dosage: UNK
  5. SIROLIMUS [Concomitant]
     Active Substance: SIROLIMUS
     Indication: Adenosine deaminase 2 deficiency
     Dosage: UNK

REACTIONS (12)
  - Staphylococcal infection [Fatal]
  - Lymphoproliferative disorder [Unknown]
  - Hypogammaglobulinaemia [Unknown]
  - Cytopenia [Unknown]
  - Drug effective for unapproved indication [Unknown]
  - Colitis [Unknown]
  - Gastrointestinal ulcer [Unknown]
  - Myalgia [Unknown]
  - Gene mutation [Unknown]
  - Off label use [Unknown]
  - Arthralgia [Unknown]
  - Pyrexia [Unknown]
